FAERS Safety Report 10177106 (Version 3)
Quarter: 2014Q4

REPORT INFORMATION
  Report Type: Report from Study
  Country: DE (occurrence: DE)
  Receive Date: 20140516
  Receipt Date: 20141031
  Transmission Date: 20150528
  Serious: Yes (Hospitalization)
  Sender: FDA-Public Use
  Company Number: DE-ABBVIE-14P-062-1235129-00

PATIENT
  Age: 43 Year
  Sex: Female

DRUGS (19)
  1. PREDNISONE. [Suspect]
     Active Substance: PREDNISONE
     Route: 048
     Dates: start: 20130807, end: 20130813
  2. PREDNISONE. [Suspect]
     Active Substance: PREDNISONE
     Route: 048
     Dates: start: 20130925, end: 20131001
  3. PREDNISONE. [Suspect]
     Active Substance: PREDNISONE
     Route: 048
     Dates: start: 20131002, end: 20131008
  4. PREDNISOLON [Concomitant]
     Active Substance: PREDNISOLONE
     Dates: start: 20130606, end: 20130716
  5. PREDNISONE. [Suspect]
     Active Substance: PREDNISONE
     Route: 048
     Dates: start: 20131009, end: 20131015
  6. EFEROX [Concomitant]
     Active Substance: LEVOTHYROXINE SODIUM
     Indication: HYPOTHYROIDISM
  7. HUMIRA [Suspect]
     Active Substance: ADALIMUMAB
     Indication: UVEITIS
     Route: 058
     Dates: start: 20130717
  8. PREDNISONE. [Suspect]
     Active Substance: PREDNISONE
     Route: 048
     Dates: start: 20130904, end: 20130910
  9. PREDNISOLON [Concomitant]
     Active Substance: PREDNISOLONE
     Indication: UVEITIS
     Route: 048
     Dates: end: 20130606
  10. HERBAL NOS [Concomitant]
     Active Substance: HERBALS
     Indication: CARCINOID TUMOUR OF THE GASTROINTESTINAL TRACT
     Dates: start: 20140312
  11. PREDNISONE. [Suspect]
     Active Substance: PREDNISONE
     Indication: UVEITIS
     Route: 048
     Dates: start: 20130717, end: 20130730
  12. PREDNISONE. [Suspect]
     Active Substance: PREDNISONE
     Route: 048
     Dates: start: 20130814, end: 20130820
  13. PREDNISONE. [Suspect]
     Active Substance: PREDNISONE
     Route: 048
     Dates: start: 20130828, end: 20130903
  14. PREDNISONE. [Suspect]
     Active Substance: PREDNISONE
     Route: 048
     Dates: start: 20130918, end: 20130924
  15. PREDNISONE. [Suspect]
     Active Substance: PREDNISONE
     Route: 048
     Dates: start: 20130731, end: 20130806
  16. PREDNISONE. [Suspect]
     Active Substance: PREDNISONE
     Route: 048
     Dates: start: 20130911, end: 20130917
  17. PREDNISONE. [Suspect]
     Active Substance: PREDNISONE
     Route: 048
     Dates: start: 20130821, end: 20130827
  18. PREDNISONE. [Suspect]
     Active Substance: PREDNISONE
     Route: 048
     Dates: start: 20131023, end: 20131029
  19. PREDNISONE. [Suspect]
     Active Substance: PREDNISONE
     Route: 048
     Dates: start: 20131016, end: 20131022

REACTIONS (1)
  - Carcinoid tumour of the gastrointestinal tract [Recovered/Resolved]

NARRATIVE: CASE EVENT DATE: 20140312
